FAERS Safety Report 5071710-0 (Version None)
Quarter: 2006Q3

REPORT INFORMATION
  Report Type: 
  Country: None (occurrence: None)
  Receive Date: 20060804
  Receipt Date: 20060725
  Transmission Date: 20061208
  Serious: Yes (Other)
  Sender: FDA-Public Use
  Company Number: PHEH2006US09561

PATIENT
  Sex: Male

DRUGS (1)
  1. ZOMETA [Suspect]
     Dates: end: 20051101

REACTIONS (1)
  - OSTEONECROSIS [None]
